FAERS Safety Report 24864618 (Version 2)
Quarter: 2025Q1

REPORT INFORMATION
  Report Type: Spontaneous
  Country: ES (occurrence: ES)
  Receive Date: 20250120
  Receipt Date: 20250210
  Transmission Date: 20250409
  Serious: Yes (Death, Life-Threatening, Other)
  Sender: ACCORD
  Company Number: ES-EMA-DD-20241210-7482663-051308

PATIENT
  Age: 21 Year
  Sex: Male

DRUGS (14)
  1. LEVETIRACETAM [Suspect]
     Active Substance: LEVETIRACETAM
     Indication: Seizure
  2. ACYCLOVIR [Suspect]
     Active Substance: ACYCLOVIR
     Indication: Evidence based treatment
  3. LEVOFLOXACIN HEMIHYDRATE [Suspect]
     Active Substance: LEVOFLOXACIN
     Indication: Postoperative wound infection
  4. PIPERACILLIN AND TAZOBACTAM [Suspect]
     Active Substance: PIPERACILLIN SODIUM\TAZOBACTAM SODIUM
     Indication: Product used for unknown indication
  5. AMIKACIN SULFATE [Suspect]
     Active Substance: AMIKACIN SULFATE
     Indication: Postoperative wound infection
  6. CANCIDAS [Suspect]
     Active Substance: CASPOFUNGIN ACETATE
     Indication: Candida infection
  7. CEFAZOLIN SODIUM [Suspect]
     Active Substance: CEFAZOLIN SODIUM
     Indication: Procedural pain
  8. DEXKETOPROFEN TROMETAMOL [Suspect]
     Active Substance: DEXKETOPROFEN TROMETAMOL
     Indication: Procedural pain
  9. LINEZOLID [Suspect]
     Active Substance: LINEZOLID
     Indication: Product used for unknown indication
  10. MEROPENEM [Suspect]
     Active Substance: MEROPENEM
     Indication: Postoperative wound infection
  11. PREDNISONE [Suspect]
     Active Substance: PREDNISONE
     Indication: Graft versus host disease
  12. TEICOPLANIN [Suspect]
     Active Substance: TEICOPLANIN
     Indication: Postoperative wound infection
  13. TRAMADOL [Suspect]
     Active Substance: TRAMADOL
     Indication: Procedural pain
  14. CANCIDAS [Suspect]
     Active Substance: CASPOFUNGIN ACETATE
     Indication: Blood culture positive

REACTIONS (2)
  - Multiple organ dysfunction syndrome [Fatal]
  - Drug reaction with eosinophilia and systemic symptoms [Fatal]
